FAERS Safety Report 25391330 (Version 2)
Quarter: 2025Q3

REPORT INFORMATION
  Report Type: Spontaneous
  Country: EU (occurrence: EU)
  Receive Date: 20250603
  Receipt Date: 20250707
  Transmission Date: 20251021
  Serious: Yes (Death, Hospitalization, Disabling, Other)
  Sender: BAYER HEALTHCARE PHARMACEUTICALS INC.
  Company Number: EU-BAYER-2025A072942

PATIENT
  Age: 66 Year
  Sex: Male

DRUGS (2)
  1. NUBEQA [Suspect]
     Active Substance: DAROLUTAMIDE
     Indication: Hormone-dependent prostate cancer
     Dosage: 600 MG, BID
     Dates: start: 20240216
  2. DOCETAXEL [Concomitant]
     Active Substance: DOCETAXEL
     Dates: start: 20240216

REACTIONS (5)
  - Hormone-dependent prostate cancer [Fatal]
  - Monoparesis [Recovering/Resolving]
  - Hospitalisation [None]
  - Metastases to lung [Not Recovered/Not Resolved]
  - Metastases to liver [Not Recovered/Not Resolved]

NARRATIVE: CASE EVENT DATE: 20241201
